FAERS Safety Report 7653874-5 (Version None)
Quarter: 2011Q3

REPORT INFORMATION
  Report Type: 
  Country: None (occurrence: None)
  Receive Date: 20110801
  Receipt Date: 20110801
  Transmission Date: 20111222
  Serious: Yes (Hospitalization)
  Sender: FDA-Public Use
  Company Number: None

PATIENT
  Sex: Female
  Weight: 82 kg

DRUGS (2)
  1. DOCETAXEL [Suspect]
     Dosage: 140 MG
     Dates: end: 20110718
  2. CARBOPLATIN [Suspect]
     Dosage: 439 MG
     Dates: end: 20110718

REACTIONS (4)
  - PYREXIA [None]
  - CONFUSIONAL STATE [None]
  - OROPHARYNGEAL PAIN [None]
  - FEBRILE NEUTROPENIA [None]
